FAERS Safety Report 5902644-4 (Version None)
Quarter: 2008Q3

REPORT INFORMATION
  Report Type: 
  Country: None (occurrence: None)
  Receive Date: 20080926
  Receipt Date: 20080916
  Transmission Date: 20090109
  Serious: Yes (Hospitalization)
  Sender: FDA-Public Use
  Company Number: 2008US002199

PATIENT
  Age: 68 Year
  Sex: Male

DRUGS (25)
  1. TACROLIMUS [Suspect]
     Indication: RENAL TRANSPLANT
     Dosage: 0.5 MG, BID, ORAL
     Route: 048
     Dates: start: 20040310
  2. MYCOPHENOLATE MOFETIL [Concomitant]
  3. PREDNISOLONE ACETATE [Concomitant]
  4. FOLIC ACID [Concomitant]
  5. COLACE (DOCUSATE SODIUM) [Concomitant]
  6. CITRACAL + D (ERGOCALCIFEROL, CALCIUM CITRATE) [Concomitant]
  7. NEXIUM (ESOMEPRAZOLE SODIUM) [Concomitant]
  8. ALLOPURINOL [Concomitant]
  9. PRAVACHOL [Concomitant]
  10. DIOVAN [Concomitant]
  11. CELLCEPT [Concomitant]
  12. DEMADEX (TORASEMIDE SODIUM) [Concomitant]
  13. ASPIRIN (CITRIC ACID) [Concomitant]
  14. NORVASC [Concomitant]
  15. FOLTX (FOLIC ACID) [Concomitant]
  16. ATENOLOL [Concomitant]
  17. CARDURA [Concomitant]
  18. ROCALTROL [Concomitant]
  19. METOPROLOL TARTRATE [Concomitant]
  20. FOLBIC (FOLIC ACID) [Concomitant]
  21. NORFLEX [Concomitant]
  22. COREG [Concomitant]
  23. MINOXIDIL [Concomitant]
  24. ARANESP [Concomitant]
  25. MULTIVITAMIN [Concomitant]

REACTIONS (10)
  - FACIAL PALSY [None]
  - HAEMATOCRIT DECREASED [None]
  - HEADACHE [None]
  - MASTOIDITIS [None]
  - OTITIS EXTERNA [None]
  - OTITIS MEDIA [None]
  - PLEURAL EFFUSION [None]
  - SINUS BRADYCARDIA [None]
  - STAPHYLOCOCCAL INFECTION [None]
  - SUPRAVENTRICULAR EXTRASYSTOLES [None]
